FAERS Safety Report 9601127 (Version 2)
Quarter: 2013Q4

REPORT INFORMATION
  Report Type: Spontaneous
  Country: US (occurrence: US)
  Receive Date: 20131004
  Receipt Date: 20131004
  Transmission Date: 20140711
  Serious: Yes (Other)
  Sender: FDA-Public Use
  Company Number: US-AMGEN-USASP2013017853

PATIENT
  Age: 41 Year
  Sex: Female
  Weight: 107.94 kg

DRUGS (5)
  1. ENBREL [Suspect]
     Indication: PSORIATIC ARTHROPATHY
     Dosage: 50 MG, QWK
     Route: 058
     Dates: start: 201209, end: 201301
  2. ENBREL [Suspect]
     Indication: PSORIASIS
  3. FLEXERIL                           /00428402/ [Concomitant]
     Dosage: UNK
  4. VICODIN [Concomitant]
     Dosage: UNK
  5. DIFLUNISAL [Concomitant]
     Dosage: UNK

REACTIONS (6)
  - Pharyngitis streptococcal [Not Recovered/Not Resolved]
  - Drug ineffective [Not Recovered/Not Resolved]
  - Psoriasis [Recovered/Resolved]
  - Tonsillar disorder [Not Recovered/Not Resolved]
  - Arthritis [Not Recovered/Not Resolved]
  - Oropharyngeal pain [Recovered/Resolved]
